FAERS Safety Report 6881388-9 (Version None)
Quarter: 2010Q3

REPORT INFORMATION
  Report Type: 
  Country: None (occurrence: None)
  Receive Date: 20100728
  Receipt Date: 20100728
  Transmission Date: 20110219
  Serious: Yes (Hospitalization)
  Sender: FDA-Public Use
  Company Number: None

PATIENT
  Sex: Male
  Weight: 93.5 kg

DRUGS (13)
  1. TEMODAR [Suspect]
     Indication: GLIOBLASTOMA MULTIFORME
     Dosage: 200MG DAILY ORAL
     Route: 048
     Dates: start: 20100309, end: 20100329
  2. TEMODAR [Suspect]
     Indication: GLIOBLASTOMA MULTIFORME
     Dosage: 200MG DAILY ORAL
     Route: 048
     Dates: start: 20100406, end: 20100426
  3. BACTRIM [Concomitant]
  4. DEXAMETHASONE [Concomitant]
  5. ZOFRAN [Concomitant]
  6. ACETAMINOPHEN [Concomitant]
  7. PROPRANOLOL [Concomitant]
  8. OMEPRAZOLE [Concomitant]
  9. NYSTATIN [Concomitant]
  10. NORTRIPTYLINE [Concomitant]
  11. KEPPRA [Concomitant]
  12. COLACE [Concomitant]
  13. ATIVAN [Concomitant]

REACTIONS (4)
  - BACK PAIN [None]
  - PULMONARY EMBOLISM [None]
  - PYREXIA [None]
  - SINUS TACHYCARDIA [None]
